FAERS Safety Report 5007825-2 (Version None)
Quarter: 2006Q2

REPORT INFORMATION
  Report Type: 
  Country: None (occurrence: None)
  Receive Date: 20060522
  Receipt Date: 20060511
  Transmission Date: 20061013
  Serious: Yes (Other)
  Sender: FDA-Public Use
  Company Number: DE-JNJFOC-20060502967

PATIENT
  Age: 81 Year
  Sex: Female

DRUGS (7)
  1. REMINYL [Suspect]
     Indication: DEMENTIA
     Route: 048
  2. RISPERDAL [Suspect]
     Indication: DEMENTIA
     Route: 048
  3. VENLAFAXINE HCL [Suspect]
     Indication: DEPRESSION
     Route: 048
  4. ZOPICLONE [Concomitant]
     Route: 048
  5. KALINOR [Concomitant]
     Route: 065
  6. DELIX PLUS [Concomitant]
     Route: 065
  7. DELIX PLUS [Concomitant]
     Route: 065

REACTIONS (1)
  - DRUG ERUPTION [None]
